FAERS Safety Report 16457977 (Version 4)
Quarter: 2020Q1

REPORT INFORMATION
  Report Type: Spontaneous
  Country: FR (occurrence: FR)
  Receive Date: 20190620
  Receipt Date: 20200206
  Transmission Date: 20200409
  Serious: Yes (Death, Hospitalization, Other)
  Sender: FDA-Public Use
  Company Number: FR-ABBVIE-19K-056-2827390-00

PATIENT
  Age: 69 Year
  Sex: Female

DRUGS (13)
  1. GAVISCON [Concomitant]
     Active Substance: ALUMINUM HYDROXIDE\MAGNESIUM CARBONATE
     Indication: PRODUCT USED FOR UNKNOWN INDICATION
  2. FASTURTEC [Suspect]
     Active Substance: RASBURICASE
     Indication: PRODUCT USED FOR UNKNOWN INDICATION
     Route: 042
  3. LEVOTHYROX [Concomitant]
     Active Substance: LEVOTHYROXINE
     Indication: PRODUCT USED FOR UNKNOWN INDICATION
  4. VENCLYXTO [Suspect]
     Active Substance: VENETOCLAX
     Indication: CHRONIC LYMPHOCYTIC LEUKAEMIA
     Route: 048
     Dates: start: 20190518, end: 20190523
  5. BARACLUDE [Concomitant]
     Active Substance: ENTECAVIR
     Indication: PRODUCT USED FOR UNKNOWN INDICATION
  6. RITUXIMAB. [Suspect]
     Active Substance: RITUXIMAB
     Indication: CHRONIC LYMPHOCYTIC LEUKAEMIA
     Route: 065
     Dates: start: 20190615
  7. ZELITREX [Concomitant]
     Active Substance: VALACYCLOVIR HYDROCHLORIDE
     Indication: PRODUCT USED FOR UNKNOWN INDICATION
  8. BACTRIM [Concomitant]
     Active Substance: SULFAMETHOXAZOLE\TRIMETHOPRIM
     Indication: PRODUCT USED FOR UNKNOWN INDICATION
  9. FEMARA [Concomitant]
     Active Substance: LETROZOLE
     Indication: PRODUCT USED FOR UNKNOWN INDICATION
  10. VENCLYXTO [Suspect]
     Active Substance: VENETOCLAX
     Route: 048
     Dates: start: 20190606
  11. FASTURTEC [Suspect]
     Active Substance: RASBURICASE
     Route: 042
  12. VENCLYXTO [Suspect]
     Active Substance: VENETOCLAX
     Route: 048
     Dates: start: 20190524, end: 20190605
  13. MOPRAL [Concomitant]
     Active Substance: OMEPRAZOLE
     Indication: PRODUCT USED FOR UNKNOWN INDICATION

REACTIONS (17)
  - Tumour lysis syndrome [Fatal]
  - Pallor [Unknown]
  - Carotid pulse decreased [Unknown]
  - Malaise [Unknown]
  - Femoral pulse decreased [Unknown]
  - Hyperuricaemia [Unknown]
  - Blood lactate dehydrogenase increased [Unknown]
  - Chronic lymphocytic leukaemia [Unknown]
  - Hyperhidrosis [Unknown]
  - Cardiac arrest [Unknown]
  - Disseminated intravascular coagulation [Unknown]
  - Lymphadenopathy [Unknown]
  - Nausea [Unknown]
  - Hyperkalaemia [Unknown]
  - Mydriasis [Unknown]
  - Neutropenia [Unknown]
  - Vomiting [Unknown]

NARRATIVE: CASE EVENT DATE: 2019
